FAERS Safety Report 8329499 (Version 4)
Quarter: 2013Q3

REPORT INFORMATION
  Report Type: Spontaneous
  Country: US (occurrence: US)
  Receive Date: 20120110
  Receipt Date: 20130919
  Transmission Date: 20140515
  Serious: Yes (Death, Hospitalization)
  Sender: FDA-Public Use
  Company Number: US-ACTELION-A-US2011-59116

PATIENT
  Age: 55 Year
  Sex: Female
  Weight: 84.81 kg

DRUGS (22)
  1. VELETRI [Suspect]
     Indication: PULMONARY ARTERIAL HYPERTENSION
     Dosage: 16.5 NG/KG, PER MIN
     Route: 042
     Dates: start: 20101029, end: 20111230
  2. ADCIRCA [Concomitant]
  3. OXYGEN [Concomitant]
  4. COUMADIN [Concomitant]
  5. FLECAINIDE [Concomitant]
  6. TOPROL [Concomitant]
  7. ATORVASTATIN [Concomitant]
  8. CELECOXIB [Concomitant]
  9. LUNESTA [Concomitant]
  10. BENADRYL [Concomitant]
  11. CALCIUM WITH VITAMIN D [Concomitant]
  12. CENTRUM SILVER [Concomitant]
  13. COLACE [Concomitant]
  14. FERROUS SULFATE [Concomitant]
  15. TIROSINT [Concomitant]
  16. ROXICET [Concomitant]
  17. OXYCONTIN [Concomitant]
  18. NEXIUM [Concomitant]
  19. EFFEXOR [Concomitant]
  20. ULTRAM [Concomitant]
  21. ZOFRAN [Concomitant]
  22. CULTURELLE [Concomitant]

REACTIONS (4)
  - Death [Fatal]
  - Tachycardia [Recovered/Resolved]
  - Dyspnoea [Recovered/Resolved]
  - Right ventricular dysfunction [Recovered/Resolved]
